FAERS Safety Report 11235129 (Version 3)
Quarter: 2016Q3

REPORT INFORMATION
  Report Type: Spontaneous
  Country: US (occurrence: US)
  Receive Date: 20150702
  Receipt Date: 20160817
  Transmission Date: 20161109
  Serious: No
  Sender: FDA-Public Use
  Company Number: US-PFIZER INC-2015217776

PATIENT
  Age: 66 Year
  Sex: Male
  Weight: 124 kg

DRUGS (7)
  1. HCTZ [Concomitant]
     Active Substance: HYDROCHLOROTHIAZIDE
     Indication: FLUID RETENTION
     Dosage: 25 MG, 1X/DAY
  2. PROCARDIA XL [Suspect]
     Active Substance: NIFEDIPINE
     Dosage: 90 MG, 1X/DAY
     Route: 048
  3. POTASSIUM [Concomitant]
     Active Substance: POTASSIUM
     Dosage: 20 MG, 1X/DAY
     Route: 048
  4. PROCARDIA XL [Suspect]
     Active Substance: NIFEDIPINE
     Dosage: 60 MG, 1X/DAY
     Route: 048
  5. TAMSULOSIN HCL [Concomitant]
     Active Substance: TAMSULOSIN
     Indication: FLUID RETENTION
     Dosage: 0.4 MG, 1X/DAY
  6. VIAGRA [Suspect]
     Active Substance: SILDENAFIL CITRATE
     Dosage: UNK
  7. SPIRONOLACTONE. [Concomitant]
     Active Substance: SPIRONOLACTONE
     Indication: RESTLESS LEGS SYNDROME
     Dosage: 25 MG, 1X/DAY

REACTIONS (2)
  - Sciatica [Unknown]
  - Back disorder [Unknown]

NARRATIVE: CASE EVENT DATE: 201506
